FAERS Safety Report 20094273 (Version 2)
Quarter: 2021Q4

REPORT INFORMATION
  Report Type: Spontaneous
  Country: GR (occurrence: GR)
  Receive Date: 20211122
  Receipt Date: 20211122
  Transmission Date: 20220304
  Serious: Yes (Other)
  Sender: FDA-Public Use
  Company Number: GR-ABBVIE-21K-066-4168341-00

PATIENT
  Age: 74 Year
  Sex: Female

DRUGS (15)
  1. VENETOCLAX [Suspect]
     Active Substance: VENETOCLAX
     Indication: Acute myeloid leukaemia
     Route: 048
     Dates: start: 20210615, end: 20210617
  2. VENETOCLAX [Suspect]
     Active Substance: VENETOCLAX
     Route: 048
     Dates: start: 20210623, end: 20210702
  3. VENETOCLAX [Suspect]
     Active Substance: VENETOCLAX
     Route: 048
     Dates: start: 20210708, end: 20210710
  4. VENETOCLAX [Suspect]
     Active Substance: VENETOCLAX
     Route: 048
     Dates: start: 20210818, end: 20210901
  5. VENETOCLAX [Suspect]
     Active Substance: VENETOCLAX
     Route: 048
     Dates: start: 20211005, end: 20211018
  6. DECITABINE [Concomitant]
     Active Substance: DECITABINE
     Indication: Acute myeloid leukaemia
     Dates: start: 20210603, end: 20210617
  7. DECITABINE [Concomitant]
     Active Substance: DECITABINE
     Dates: start: 20210623
  8. DECITABINE [Concomitant]
     Active Substance: DECITABINE
     Dates: start: 20210608, end: 20210610
  9. DECITABINE [Concomitant]
     Active Substance: DECITABINE
     Dates: start: 20210818
  10. DECITABINE [Concomitant]
     Active Substance: DECITABINE
     Dates: start: 20211005
  11. GLICLAZIDE [Concomitant]
     Active Substance: GLICLAZIDE
     Indication: Type 2 diabetes mellitus
  12. ZESIMVIA [Concomitant]
     Indication: Type 2 diabetes mellitus
     Dosage: 10+20 MG
  13. DILTIAZEM HYDROCHLORIDE [Concomitant]
     Active Substance: DILTIAZEM HYDROCHLORIDE
     Indication: Hypertension
  14. LUCIDEL PLUS [Concomitant]
     Indication: Product used for unknown indication
     Dosage: 30+25 MG
  15. MICAFUNGIN [Concomitant]
     Active Substance: MICAFUNGIN
     Indication: Antifungal prophylaxis
     Dates: start: 20210615

REACTIONS (25)
  - Aplasia [Recovered/Resolved]
  - Anal neoplasm [Unknown]
  - Acute coronary syndrome [Unknown]
  - Organ failure [Recovered/Resolved]
  - Altered state of consciousness [Recovering/Resolving]
  - Dysphoria [Unknown]
  - Chest pain [Recovered/Resolved]
  - Chest pain [Unknown]
  - Electrocardiogram repolarisation abnormality [Unknown]
  - Troponin increased [Unknown]
  - Platelet count increased [Unknown]
  - Coronary artery disease [Unknown]
  - Chest pain [Unknown]
  - Myocardial necrosis marker increased [Unknown]
  - Hypokalaemia [Unknown]
  - Neutropenia [Unknown]
  - Pyrexia [Unknown]
  - Pyrexia [Unknown]
  - Neutropenia [Recovered/Resolved]
  - Pulmonary mass [Unknown]
  - Pyrexia [Recovered/Resolved]
  - Hypotension [Recovering/Resolving]
  - Back pain [Recovering/Resolving]
  - Pyrexia [Recovered/Resolved]
  - Pyrexia [Recovered/Resolved]

NARRATIVE: CASE EVENT DATE: 20210617
